FAERS Safety Report 5290768-7 (Version None)
Quarter: 2007Q2

REPORT INFORMATION
  Report Type: 
  Country: None (occurrence: None)
  Receive Date: 20070409
  Receipt Date: 20070328
  Transmission Date: 20071010
  Serious: Yes (Hospitalization, Other)
  Sender: FDA-Public Use
  Company Number: DE-PFIZER INC-2007026090

PATIENT
  Age: 82 Year
  Sex: Female
  Weight: 55 kg

DRUGS (9)
  1. ATORVASTATIN CALCIUM [Suspect]
     Dosage: DAILY DOSE:30MG
     Route: 048
  2. METOPROLOL SUCCINATE [Concomitant]
     Route: 048
  3. QUANTALAN [Concomitant]
  4. EUTHYROX [Concomitant]
  5. SPIRIVA [Concomitant]
  6. MARCUMAR [Concomitant]
     Route: 048
  7. PLAVIX [Concomitant]
     Route: 048
  8. CALCIUM [Concomitant]
  9. VITAMIN D3 [Concomitant]

REACTIONS (2)
  - BLOOD CREATINE PHOSPHOKINASE INCREASED [None]
  - THROMBOSIS [None]
